FAERS Safety Report 8493074-2 (Version None)
Quarter: 2012Q3

REPORT INFORMATION
  Report Type: 
  Country: None (occurrence: None)
  Receive Date: 20120706
  Receipt Date: 20120703
  Transmission Date: 20120928
  Serious: Yes (Hospitalization)
  Sender: FDA-Public Use
  Company Number: US-GILEAD-2012-0055975

PATIENT
  Sex: Female

DRUGS (2)
  1. LETAIRIS [Suspect]
     Indication: PULMONARY HYPERTENSION
     Dosage: 10 MG, UNK
     Route: 048
     Dates: start: 20090729
  2. REMODULIN [Suspect]

REACTIONS (9)
  - RASH MACULAR [None]
  - BURNING SENSATION [None]
  - POLYURIA [None]
  - CHILLS [None]
  - PAIN IN JAW [None]
  - HEADACHE [None]
  - FLUID RETENTION [None]
  - OEDEMA [None]
  - MUSCULOSKELETAL PAIN [None]
